FAERS Safety Report 6111037-9 (Version None)
Quarter: 2009Q1

REPORT INFORMATION
  Report Type: 
  Country: None (occurrence: None)
  Receive Date: 20090309
  Receipt Date: 20090309
  Transmission Date: 20090719
  Serious: Yes (Other)
  Sender: FDA-Public Use
  Company Number: None

PATIENT
  Age: 60 Year
  Sex: Female
  Weight: 81.6475 kg

DRUGS (1)
  1. MUCINEX [Suspect]
     Indication: BRONCHITIS
     Dosage: ONE TABLET ONCE PO
     Route: 048
     Dates: start: 20081215, end: 20081215

REACTIONS (1)
  - CHEST PAIN [None]
